FAERS Safety Report 11886805 (Version 1)
Quarter: 2016Q1

REPORT INFORMATION
  Report Type: Spontaneous
  Country: FR (occurrence: FR)
  Receive Date: 20160104
  Receipt Date: 20160104
  Transmission Date: 20160526
  Serious: Yes (Other)
  Sender: FDA-Public Use
  Company Number: FR-SA-2015SA222457

PATIENT

DRUGS (1)
  1. APROVEL [Suspect]
     Active Substance: IRBESARTAN
     Route: 065
     Dates: start: 201509

REACTIONS (3)
  - Myalgia [Unknown]
  - Fatigue [Unknown]
  - Haemorrhage urinary tract [Unknown]
